FAERS Safety Report 10490503 (Version 1)
Quarter: 2014Q4

REPORT INFORMATION
  Report Type: Spontaneous
  Country: FR (occurrence: FR)
  Receive Date: 20141002
  Receipt Date: 20141002
  Transmission Date: 20150528
  Serious: Yes (Hospitalization)
  Sender: FDA-Public Use
  Company Number: FR-PFIZER INC-2014271297

PATIENT
  Age: 60 Year
  Sex: Female

DRUGS (4)
  1. TAREG [Suspect]
     Active Substance: VALSARTAN
     Dosage: 160 MG, DAILY
     Route: 048
     Dates: end: 20140630
  2. JANUVIA [Suspect]
     Active Substance: SITAGLIPTIN PHOSPHATE
     Dosage: 100
  3. ATORVASTATIN CALCIUM. [Suspect]
     Active Substance: ATORVASTATIN CALCIUM
     Dosage: 20
  4. ALDACTONE [Suspect]
     Active Substance: SPIRONOLACTONE
     Dosage: 75 MG, DAILY
     Route: 048
     Dates: end: 20140630

REACTIONS (1)
  - Cystitis [Unknown]

NARRATIVE: CASE EVENT DATE: 201406
